FAERS Safety Report 8191376-0 (Version None)
Quarter: 2012Q1

REPORT INFORMATION
  Report Type: 
  Country: None (occurrence: None)
  Receive Date: 20120307
  Receipt Date: 20120229
  Transmission Date: 20120608
  Serious: Yes (Other)
  Sender: FDA-Public Use
  Company Number: IT-GILEAD-2012-0051796

PATIENT
  Age: 70 Year
  Sex: Male

DRUGS (12)
  1. RANOLAZINE [Suspect]
     Indication: ANGINA PECTORIS
     Dosage: UNK
     Route: 048
     Dates: start: 20120201, end: 20120228
  2. LANSOPRAZOLO [Concomitant]
     Route: 048
  3. SERTRALINA [Concomitant]
  4. BISOPROLOL FUMARATE [Concomitant]
     Route: 048
  5. TAMSULOSIN HCL [Concomitant]
     Indication: BENIGN PROSTATIC HYPERPLASIA
     Route: 048
  6. ASPIRIN [Concomitant]
     Route: 048
  7. METFORMINA                         /00082702/ [Concomitant]
     Indication: DIABETES MELLITUS
     Dosage: 500 MG, UNK
     Route: 048
  8. INSULINA                           /01223201/ [Concomitant]
     Indication: DIABETES MELLITUS
  9. ATORVASTATIN CALCIUM [Concomitant]
     Dosage: 40 MG, UNK
     Route: 048
  10. RAMIPRIL [Concomitant]
     Dosage: 5 MG, UNK
     Route: 048
  11. ELAN [Concomitant]
     Dosage: 20 MG, BID
  12. LYRICA [Concomitant]
     Dosage: 75 MG, UNK
     Route: 048

REACTIONS (5)
  - VOMITING [None]
  - SYNCOPE [None]
  - CONFUSIONAL STATE [None]
  - DIZZINESS [None]
  - DIABETES MELLITUS INADEQUATE CONTROL [None]
